FAERS Safety Report 6696516-8 (Version None)
Quarter: 2010Q2

REPORT INFORMATION
  Report Type: 
  Country: None (occurrence: None)
  Receive Date: 20100426
  Receipt Date: 20100420
  Transmission Date: 20101027
  Serious: Yes (Death)
  Sender: FDA-Public Use
  Company Number: TR-ELI_LILLY_AND_COMPANY-TR201004005630

PATIENT
  Age: 70 Year
  Sex: Male

DRUGS (3)
  1. HUMULIN R [Suspect]
     Indication: DIABETES MELLITUS
     Dosage: 8 U, 3/D
     Route: 058
     Dates: start: 20100114, end: 20100216
  2. HUMULIN N [Suspect]
     Indication: DIABETES MELLITUS
     Dosage: 8 U, EACH EVENING
     Route: 058
     Dates: start: 20100114, end: 20100216
  3. ANALGESICS [Concomitant]
     Dosage: UNK, UNKNOWN

REACTIONS (1)
  - GASTRIC CANCER [None]
